FAERS Safety Report 10626653 (Version 4)
Quarter: 2014Q4

REPORT INFORMATION
  Report Type: Report from Study
  Country: BE (occurrence: BE)
  Receive Date: 20141204
  Receipt Date: 20141224
  Transmission Date: 20150529
  Serious: Yes (Hospitalization)
  Sender: FDA-Public Use
  Company Number: BE-009507513-1412BEL001547

PATIENT
  Age: 61 Year
  Sex: Male
  Weight: 65.7 kg

DRUGS (9)
  1. PEMBROLIZUMAB. [Suspect]
     Active Substance: PEMBROLIZUMAB
     Indication: HEAD AND NECK CANCER
     Dosage: 10 MG/KG, QOW
     Route: 042
     Dates: start: 20140805, end: 20141021
  2. ZOLPIDEM TARTRATE. [Concomitant]
     Active Substance: ZOLPIDEM TARTRATE
     Indication: INSOMNIA
     Dosage: 10 MG, QD
     Route: 048
     Dates: start: 201408
  3. PEMBROLIZUMAB. [Suspect]
     Active Substance: PEMBROLIZUMAB
     Dosage: 10 MG/KG, QOW
     Route: 042
     Dates: start: 20141112, end: 20141112
  4. FENTANYL. [Concomitant]
     Active Substance: FENTANYL
     Indication: TUMOUR PAIN
     Dosage: DAILY DOSE: 75 MICROGRAM/HOUR, STRENGTH: 1 MICROGRAM/HOUR, FREQUENCY: OTHER
     Route: 062
     Dates: start: 201405
  5. OXYCODONE [Concomitant]
     Active Substance: OXYCODONE
     Indication: TUMOUR PAIN
     Dosage: TOTAL DAILY DOSE: 5 MG, PRN
     Route: 048
     Dates: start: 201407
  6. PREGABALIN. [Concomitant]
     Active Substance: PREGABALIN
     Indication: TUMOUR PAIN
     Dosage: 150 MG, BID
     Route: 048
     Dates: start: 201408
  7. ACETAMINOPHEN. [Concomitant]
     Active Substance: ACETAMINOPHEN
     Indication: PREMEDICATION
     Dosage: 2 GRAM, DAILY, FREQUENCY: OTHER
     Route: 048
     Dates: start: 20140825, end: 20141112
  8. DIPHENHYDRAMINE HYDROCHLORIDE. [Concomitant]
     Active Substance: DIPHENHYDRAMINE HYDROCHLORIDE
     Indication: PREMEDICATION
     Dosage: 100 MG,FREQUENCY: OTHER
     Route: 048
     Dates: start: 20140825, end: 20141112
  9. POLYETHYLENE GLYCOL [Concomitant]
     Active Substance: POLYETHYLENE GLYCOLS
     Indication: CONSTIPATION
     Dosage: 1 PACKET, BID
     Route: 048
     Dates: start: 20140811

REACTIONS (1)
  - Respiratory distress [Unknown]

NARRATIVE: CASE EVENT DATE: 20141123
